FAERS Safety Report 19916809 (Version 1)
Quarter: 2021Q4

REPORT INFORMATION
  Report Type: Other
  Country: IN (occurrence: IN)
  Receive Date: 20211005
  Receipt Date: 20211005
  Transmission Date: 20220303
  Serious: Yes (Hospitalization)
  Sender: FDA-Public Use
  Company Number: IN-BIOLOGICAL E. LTD-2119178

PATIENT
  Age: 3 Year

DRUGS (1)
  1. NEOSTIGMINE METHYLSULFATE [Suspect]
     Active Substance: NEOSTIGMINE METHYLSULFATE
     Indication: Myasthenia gravis
     Route: 065

REACTIONS (1)
  - Cholinergic syndrome [Recovering/Resolving]
